FAERS Safety Report 23292171 (Version 1)
Quarter: 2023Q4

REPORT INFORMATION
  Report Type: Spontaneous
  Country: RO (occurrence: RO)
  Receive Date: 20231213
  Receipt Date: 20231213
  Transmission Date: 20240110
  Serious: Yes (Other)
  Sender: FDA-Public Use
  Company Number: RO-Merck Healthcare KGaA-2023492958

PATIENT
  Age: 65 Year
  Sex: Male

DRUGS (3)
  1. AVELUMAB [Suspect]
     Active Substance: AVELUMAB
     Indication: Papillary renal cell carcinoma
     Route: 042
  2. AXITINIB [Concomitant]
     Active Substance: AXITINIB
     Route: 048
  3. AXITINIB [Concomitant]
     Active Substance: AXITINIB

REACTIONS (1)
  - Hepatic cytolysis [Unknown]
